FAERS Safety Report 9228306 (Version 2)
Quarter: 2013Q2

REPORT INFORMATION
  Report Type: Report from Study
  Country: IT (occurrence: IT)
  Receive Date: 20130412
  Receipt Date: 20130617
  Transmission Date: 20140414
  Serious: Yes (Other)
  Sender: FDA-Public Use
  Company Number: IT-ROCHE-1208722

PATIENT
  Sex: 0

DRUGS (2)
  1. ALTEPLASE [Suspect]
     Indication: CARDIAC VALVE REPLACEMENT COMPLICATION
     Dosage: 10 MG I.V. BOLUS FOLLOWED BY 90 MG INFUSION OVER 3 HOURS.
     Route: 040
  2. HEPARIN [Suspect]
     Indication: CARDIAC VALVE REPLACEMENT COMPLICATION
     Route: 042

REACTIONS (1)
  - Nervous system disorder [Unknown]
